FAERS Safety Report 22349138 (Version 4)
Quarter: 2024Q1

REPORT INFORMATION
  Report Type: Report from Study
  Country: US (occurrence: US)
  Receive Date: 20230522
  Receipt Date: 20240220
  Transmission Date: 20240410
  Serious: Yes (Hospitalization, Other)
  Sender: FDA-Public Use
  Company Number: US-ABBVIE-5173881

PATIENT
  Sex: Female

DRUGS (5)
  1. VENCLEXTA [Suspect]
     Active Substance: VENETOCLAX
     Indication: Chronic lymphocytic leukaemia
     Dosage: FORM STRENGTH: 100 MG  TAKE 4 TABLET(S) BY MOUTH DAILY
     Route: 048
  2. VENCLEXTA [Suspect]
     Active Substance: VENETOCLAX
     Indication: Chronic lymphocytic leukaemia
     Dosage: FORM STRENGTH: 100 MILLIGRAM
     Route: 048
  3. GAZYVA [Suspect]
     Active Substance: OBINUTUZUMAB
     Indication: Product used for unknown indication
     Dosage: FORM OF ADMIN.: VIAL INFUSE. DOSE: 1000 MG
     Route: 042
  4. HYDROCODONE [Concomitant]
     Active Substance: HYDROCODONE
     Indication: Product used for unknown indication
  5. MORPHINE [Concomitant]
     Active Substance: MORPHINE
     Indication: Product used for unknown indication

REACTIONS (12)
  - Cyst [Unknown]
  - Anxiety [Unknown]
  - Pneumonia [Unknown]
  - Bone pain [Unknown]
  - Asthenia [Unknown]
  - Back pain [Unknown]
  - COVID-19 [Unknown]
  - Mobility decreased [Unknown]
  - Hyperhidrosis [Unknown]
  - Leukaemia recurrent [Unknown]
  - Gait inability [Unknown]
  - Gait disturbance [Unknown]
